FAERS Safety Report 11199260 (Version 1)
Quarter: 2015Q2

REPORT INFORMATION
  Report Type: Spontaneous
  Country: UG (occurrence: None)
  Receive Date: 20150616
  Receipt Date: 20150616
  Transmission Date: 20150821
  Serious: No
  Sender: FDA-Public Use
  Company Number: UG2015GSK081248

PATIENT

DRUGS (1)
  1. ZIDOVUDINE (ZIDOVUDINE) UNKNOWN) [Suspect]
     Active Substance: ZIDOVUDINE
     Indication: HIV INFECTION

REACTIONS (1)
  - Neuropathy peripheral [None]
